FAERS Safety Report 6781164-1 (Version None)
Quarter: 2010Q2

REPORT INFORMATION
  Report Type: 
  Country: None (occurrence: None)
  Receive Date: 20100621
  Receipt Date: 20100615
  Transmission Date: 20101027
  Serious: Yes (Hospitalization, Other)
  Sender: FDA-Public Use
  Company Number: US-BRISTOL-MYERS SQUIBB COMPANY-15151160

PATIENT
  Age: 61 Year
  Sex: Male

DRUGS (12)
  1. ABILIFY [Suspect]
     Dosage: DURATION: 3 TO 6 MONTHS
  2. RISPERDAL [Concomitant]
  3. COLACE [Concomitant]
  4. IRON [Concomitant]
  5. PROTONIX [Concomitant]
  6. ANTIBIOTIC [Concomitant]
  7. SYNTHROID [Concomitant]
  8. PROAMATINE [Concomitant]
  9. ATIVAN [Concomitant]
  10. RESTORIL [Concomitant]
  11. DEPAKOTE [Concomitant]
  12. LOVENOX [Concomitant]

REACTIONS (2)
  - BLOOD PRESSURE DECREASED [None]
  - CELLULITIS [None]
